FAERS Safety Report 15659385 (Version 1)
Quarter: 2018Q4

REPORT INFORMATION
  Report Type: Spontaneous
  Country: KR (occurrence: KR)
  Receive Date: 20181127
  Receipt Date: 20181127
  Transmission Date: 20190205
  Serious: Yes (Death, Other)
  Sender: FDA-Public Use
  Company Number: KR-009507513-1811KOR008944

PATIENT
  Sex: Female

DRUGS (22)
  1. DUROGESIC [Concomitant]
     Active Substance: FENTANYL
     Dosage: PATCH 25 MICRO-GRAM PER HOUR; QUANTITY: 52 (UNIT NOT REPORTED); DAYS: 1
     Dates: start: 20180531
  2. ABSTRAL [Concomitant]
     Active Substance: FENTANYL CITRATE
     Dosage: QUANTITY: 8 (UNIT NOT REPORTED); DAYS: 29
     Route: 060
     Dates: start: 20180522, end: 20180607
  3. ABSTRAL [Concomitant]
     Active Substance: FENTANYL CITRATE
     Dosage: QUANTITY: 4 (UNIT NOT REPORTED); DAYS: 15
     Route: 060
     Dates: start: 20180607
  4. SMOFKABIVEN [Concomitant]
     Active Substance: AMINO ACIDS\DEXTROSE\ELECTROLYTES NOS\SOYBEAN OIL
     Dosage: QUANTITY: 1 (UNIT NOT REPORTED); DAYS: 17
     Dates: start: 20180521, end: 20180606
  5. MORPHINE SULFATE. [Concomitant]
     Active Substance: MORPHINE SULFATE
     Dosage: 5MG/5ML; QUANTITY: 7 (UNIT NOT REPORTED); DAYS: 1
     Dates: start: 20180527
  6. MORPHINE SULFATE. [Concomitant]
     Active Substance: MORPHINE SULFATE
     Dosage: 5MG/5ML; QUANTITY: 18 (UNIT NOT REPORTED); DAYS: 1
     Dates: start: 20180528
  7. MORPHINE SULFATE. [Concomitant]
     Active Substance: MORPHINE SULFATE
     Dosage: 5MG/5ML; QUANTITY: 11 (UNIT NOT REPORTED); DAYS: 2
     Dates: start: 20180602
  8. MORPHINE SULFATE. [Concomitant]
     Active Substance: MORPHINE SULFATE
     Dosage: 5MG/5ML; QUANTITY: 1 (UNIT NOT REPORTED); DAYS: 1
     Dates: start: 20180523
  9. DUROGESIC [Concomitant]
     Active Substance: FENTANYL
     Dosage: PATCH 12 MICRO-GRAM PER HOUR; QUANTITY: 2 (UNIT NOT REPORTED); DAYS: 1
     Dates: start: 20180525, end: 20180530
  10. DUROGESIC [Concomitant]
     Active Substance: FENTANYL
     Dosage: PATCH 100 MICRO-GRAM PER HOUR; QUANTITY: 1(UNIT NOT REPORTED); DAYS: 1
     Dates: start: 20180525, end: 20180607
  11. ABSTRAL [Concomitant]
     Active Substance: FENTANYL CITRATE
     Dosage: QUANTITY: 4(UNIT NOT REPORTED); DAYS: 1
     Route: 060
     Dates: start: 20180521
  12. MORPHINE SULFATE. [Concomitant]
     Active Substance: MORPHINE SULFATE
     Dosage: 1G/ML; QUANTITY: 3 (UNIT NOT REPORTED); DAYS: 2
     Dates: start: 20180520, end: 20180521
  13. MORPHINE SULFATE. [Concomitant]
     Active Substance: MORPHINE SULFATE
     Dosage: 5MG/5ML; QUANTITY: 2 (UNIT NOT REPORTED); DAYS: 2
     Dates: start: 20180522, end: 20180526
  14. DUROGESIC [Concomitant]
     Active Substance: FENTANYL
     Dosage: PATCH 25 MICRO-GRAM PER HOUR; QUANTITY: 3(UNIT NOT REPORTED); DAYS: 1
     Dates: start: 20180524, end: 20180530
  15. MORPHINE SULFATE. [Concomitant]
     Active Substance: MORPHINE SULFATE
     Dosage: 5MG/5ML; QUANTITY: 8 (UNIT NOT REPORTED); DAYS: 2
     Dates: start: 20180521, end: 20180604
  16. MORPHINE SULFATE. [Concomitant]
     Active Substance: MORPHINE SULFATE
     Dosage: 5MG/5ML; QUANTITY: 3 (UNIT NOT REPORTED); DAYS: 1
     Dates: start: 20180525
  17. MORPHINE SULFATE. [Concomitant]
     Active Substance: MORPHINE SULFATE
     Dosage: 5MG/5ML; QUANTITY: 10 (UNIT NOT REPORTED); DAYS: 2
     Dates: start: 20180529, end: 20180530
  18. ABSTRAL [Concomitant]
     Active Substance: FENTANYL CITRATE
     Dosage: QUANTITY: 4 (UNIT NOT REPORTED); DAYS: 2
     Route: 060
     Dates: start: 20180523, end: 20180524
  19. KEYTRUDA [Suspect]
     Active Substance: PEMBROLIZUMAB
     Indication: GALLBLADDER CANCER
     Dosage: QUANTITY: 2 (UNIT NOT REPORTED); DAYS: 1
     Dates: start: 20180525
  20. ABSTRAL [Concomitant]
     Active Substance: FENTANYL CITRATE
     Dosage: QUANTITY: 4(UNIT NOT REPORTED); DAYS: 1
     Route: 060
     Dates: start: 20180521
  21. MORPHINE SULFATE. [Concomitant]
     Active Substance: MORPHINE SULFATE
     Dosage: 5MG/5ML; QUANTITY: 4 (UNIT NOT REPORTED); DAYS: 1
     Dates: start: 20180524
  22. MORPHINE SULFATE. [Concomitant]
     Active Substance: MORPHINE SULFATE
     Dosage: 5MG/5ML; QUANTITY: 5 (UNIT NOT REPORTED); DAYS: 3
     Dates: start: 20180603, end: 20180606

REACTIONS (2)
  - Malignant neoplasm progression [Fatal]
  - Product use in unapproved indication [Unknown]

NARRATIVE: CASE EVENT DATE: 20180525
